FAERS Safety Report 5892451-3 (Version None)
Quarter: 2008Q3

REPORT INFORMATION
  Report Type: 
  Country: None (occurrence: None)
  Receive Date: 20080923
  Receipt Date: 20080911
  Transmission Date: 20090109
  Serious: Yes (Hospitalization)
  Sender: FDA-Public Use
  Company Number: CA-JNJFOC-20080602711

PATIENT
  Sex: Male
  Weight: 85.9 kg

DRUGS (8)
  1. REMICADE [Suspect]
     Route: 042
  2. REMICADE [Suspect]
     Route: 042
  3. REMICADE [Suspect]
     Route: 042
  4. REMICADE [Suspect]
     Dosage: 4 INFUSIONS ON UNKNOWN DATES
     Route: 042
  5. REMICADE [Suspect]
     Dosage: 4 INFUSIONS ON UNKNOWN DATES
     Route: 042
  6. REMICADE [Suspect]
     Dosage: INDUCTION
     Route: 042
  7. REMICADE [Suspect]
     Dosage: INDUCTION
     Route: 042
  8. REMICADE [Suspect]
     Indication: CROHN'S DISEASE
     Dosage: INDUCTION
     Route: 042

REACTIONS (1)
  - EPIPLOIC APPENDAGITIS [None]
